FAERS Safety Report 12838098 (Version 3)
Quarter: 2016Q4

REPORT INFORMATION
  Report Type: Spontaneous
  Country: US (occurrence: US)
  Receive Date: 20161012
  Receipt Date: 20161128
  Transmission Date: 20170207
  Serious: Yes (Other)
  Sender: FDA-Public Use
  Company Number: US-JNJFOC-20161007407

PATIENT
  Age: 56 Year
  Sex: Female

DRUGS (6)
  1. LEVAQUIN [Suspect]
     Active Substance: LEVOFLOXACIN
     Indication: NAUSEA
     Route: 048
     Dates: start: 200609
  2. LEVAQUIN [Suspect]
     Active Substance: LEVOFLOXACIN
     Indication: NAUSEA
     Route: 048
     Dates: start: 200608
  3. LEVAQUIN [Suspect]
     Active Substance: LEVOFLOXACIN
     Indication: PNEUMONIA
     Route: 048
     Dates: start: 200609
  4. LEVAQUIN [Suspect]
     Active Substance: LEVOFLOXACIN
     Indication: VOMITING
     Route: 048
     Dates: start: 200609
  5. LEVAQUIN [Suspect]
     Active Substance: LEVOFLOXACIN
     Indication: VOMITING
     Route: 048
     Dates: start: 200608
  6. LEVAQUIN [Suspect]
     Active Substance: LEVOFLOXACIN
     Indication: PNEUMONIA
     Route: 048
     Dates: start: 200608

REACTIONS (2)
  - Nerve compression [Unknown]
  - Neuropathy peripheral [Unknown]

NARRATIVE: CASE EVENT DATE: 200609
